FAERS Safety Report 10595369 (Version 2)
Quarter: 2014Q4

REPORT INFORMATION
  Report Type: Report from Study
  Country: GB (occurrence: GB)
  Receive Date: 20141120
  Receipt Date: 20141222
  Transmission Date: 20150529
  Serious: Yes (Hospitalization, Other)
  Sender: FDA-Public Use
  Company Number: GB-ROCHE-1489312

PATIENT
  Age: 66 Year
  Sex: Female
  Weight: 84.6 kg

DRUGS (1)
  1. BEVACIZUMAB [Suspect]
     Active Substance: BEVACIZUMAB
     Indication: OVARIAN CANCER
     Dosage: THE MOST RECENT DOSE OF BEVACIZUMAB PRIOR TO POSTURAL HYPOTENSION AND DVT: 20/AUG/2014
     Route: 042
     Dates: start: 20140730, end: 20140820

REACTIONS (6)
  - Dizziness postural [Recovered/Resolved]
  - Deep vein thrombosis [Recovered/Resolved]
  - Orthostatic hypotension [Recovered/Resolved]
  - Anaemia [Recovered/Resolved]
  - Fatigue [Not Recovered/Not Resolved]
  - Mucosal inflammation [Recovered/Resolved]

NARRATIVE: CASE EVENT DATE: 201408
